FAERS Safety Report 13782282 (Version 1)
Quarter: 2017Q3

REPORT INFORMATION
  Report Type: Spontaneous
  Country: US (occurrence: US)
  Receive Date: 20170724
  Receipt Date: 20170724
  Transmission Date: 20171127
  Serious: No
  Sender: FDA-Public Use
  Company Number: US-IPSEN BIOPHARMACEUTICALS, INC.-2016-05675

PATIENT
  Age: 66 Year
  Sex: Male

DRUGS (3)
  1. HYDROCORTISON [Concomitant]
     Active Substance: HYDROCORTISONE
  2. TRAMADOL. [Concomitant]
     Active Substance: TRAMADOL
  3. SOMATULINE DEPOT [Suspect]
     Active Substance: LANREOTIDE ACETATE
     Indication: ACROMEGALY
     Dosage: 120 MG
     Route: 058
     Dates: start: 20151229

REACTIONS (2)
  - Mouth swelling [Recovered/Resolved]
  - Oral disorder [Recovered/Resolved]

NARRATIVE: CASE EVENT DATE: 20160627
